FAERS Safety Report 8833246 (Version 4)
Quarter: 2014Q1

REPORT INFORMATION
  Report Type: Report from Study
  Country: US (occurrence: US)
  Receive Date: 20121010
  Receipt Date: 20140318
  Transmission Date: 20141002
  Serious: Yes (Hospitalization, Disabling, Other)
  Sender: FDA-Public Use
  Company Number: PHEH2012US017789

PATIENT
  Sex: Female

DRUGS (11)
  1. SANDOSTATIN LAR DEPOT [Suspect]
     Indication: SHORT-BOWEL SYNDROME
     Dosage: 30 MG, UNK
     Route: 042
  2. SANDOSTATIN LAR DEPOT [Suspect]
     Indication: CROHN^S DISEASE
  3. NEXIUM [Concomitant]
     Dosage: UNK UKN, UNK
  4. XIFAXAN [Concomitant]
     Dosage: UNK UKN, UNK
  5. FOLIC ACID [Concomitant]
     Dosage: UNK UKN, UNK
  6. ZOFRAN [Concomitant]
     Dosage: UNK UKN, UNK
  7. MIRTAZAPINE [Concomitant]
     Dosage: UNK UKN, UNK
  8. NEURONTIN [Concomitant]
     Dosage: UNK UKN, UNK
  9. AMITRIPTYLINE [Concomitant]
     Dosage: UNK UKN, UNK
  10. TEGRETOL [Concomitant]
     Dosage: UNK UKN, UNK
  11. INDERAL [Concomitant]
     Dosage: UNK UKN, UNK

REACTIONS (6)
  - Fistula [Unknown]
  - Crohn^s disease [Unknown]
  - Pollakiuria [Unknown]
  - Asthenia [Unknown]
  - Diarrhoea [Recovering/Resolving]
  - Drug ineffective [Unknown]
